FAERS Safety Report 9956250 (Version 1)
Quarter: 2014Q1

REPORT INFORMATION
  Report Type: Report from Study
  Country: US (occurrence: US)
  Receive Date: 20140304
  Receipt Date: 20140304
  Transmission Date: 20141002
  Serious: No
  Sender: FDA-Public Use
  Company Number: US-ABBVIE-13P-163-1085017-00

PATIENT
  Age: 58 Year
  Sex: Female

DRUGS (8)
  1. HUMIRA [Suspect]
     Indication: CROHN^S DISEASE
     Dates: start: 20130426
  2. BUDESONIDE [Concomitant]
     Indication: CROHN^S DISEASE
  3. RANITIDINE [Concomitant]
     Indication: GASTRIC DISORDER
     Route: 048
  4. PREDNISONE [Concomitant]
     Indication: CROHN^S DISEASE
     Route: 048
  5. DICYCLOMINE [Concomitant]
     Indication: GASTRIC DISORDER
     Route: 048
  6. CITALOPRAM [Concomitant]
     Indication: NERVOUSNESS
     Route: 048
  7. AMITRIPTYLINE [Concomitant]
     Indication: INSOMNIA
     Route: 048
  8. FIORICET [Concomitant]
     Indication: MIGRAINE

REACTIONS (3)
  - Injection site pain [Recovering/Resolving]
  - Injection site bruising [Recovering/Resolving]
  - Injection site erythema [Recovering/Resolving]
